FAERS Safety Report 6275374-X (Version None)
Quarter: 2009Q3

REPORT INFORMATION
  Report Type: 
  Country: None (occurrence: None)
  Receive Date: 20090721
  Receipt Date: 20090714
  Transmission Date: 20100115
  Serious: Yes (Hospitalization)
  Sender: FDA-Public Use
  Company Number: IT-ABBOTT-09P-083-0585595-00

PATIENT
  Sex: Female

DRUGS (3)
  1. CLARITHROMYCIN TABLETS [Suspect]
     Indication: HELICOBACTER INFECTION
     Route: 048
     Dates: start: 20090325, end: 20090331
  2. AMOXICILLIN [Suspect]
     Indication: HELICOBACTER INFECTION
     Route: 048
     Dates: start: 20090325, end: 20090331
  3. PEPTAZOL [Suspect]
     Indication: HELICOBACTER INFECTION
     Route: 048
     Dates: start: 20090325, end: 20090325

REACTIONS (3)
  - ERYTHEMA [None]
  - OEDEMA [None]
  - URTICARIA [None]
